FAERS Safety Report 5843572-2 (Version None)
Quarter: 2008Q3

REPORT INFORMATION
  Report Type: 
  Country: None (occurrence: None)
  Receive Date: 20080813
  Receipt Date: 20080501
  Transmission Date: 20090109
  Serious: No
  Sender: FDA-Public Use
  Company Number: A0725867A

PATIENT
  Age: 74 Year
  Sex: Male

DRUGS (7)
  1. COREG CR [Suspect]
     Indication: HEART RATE
     Dosage: 20MG PER DAY
     Route: 048
     Dates: start: 20080115
  2. ZETIA [Concomitant]
  3. COQ10 [Concomitant]
  4. ASPIRIN [Concomitant]
  5. GRAPESEED EXTRACT [Concomitant]
  6. ZINC [Concomitant]
  7. GINKO BILOBA [Concomitant]

REACTIONS (1)
  - TINNITUS [None]
